FAERS Safety Report 4599864-0 (Version None)
Quarter: 2005Q1

REPORT INFORMATION
  Report Type: 
  Country: None (occurrence: None)
  Receive Date: 20050303
  Receipt Date: 20050215
  Transmission Date: 20050727
  Serious: Yes (Hospitalization)
  Sender: FDA-Public Use
  Company Number: ACO_0130_2005

PATIENT
  Age: 23 Year
  Sex: Female

DRUGS (4)
  1. SIRDALUD [Suspect]
     Dosage: 16 MG QD PO
     Route: 048
     Dates: start: 20050112, end: 20050112
  2. DIFLUCAN [Suspect]
     Dosage: 1 TAB QDAY PO
     Route: 048
     Dates: start: 20050112, end: 20050112
  3. ZOMIG [Suspect]
     Dosage: 4 TAB QDAY PO
     Route: 048
     Dates: start: 20050112, end: 20050112
  4. BENZODIAZEPINES [Suspect]
     Dates: start: 20050112, end: 20050112

REACTIONS (8)
  - CONVERSION DISORDER [None]
  - DISSOCIATIVE DISORDER [None]
  - DRUG ABUSER [None]
  - DYSPHONIA [None]
  - MUSCLE CONTRACTURE [None]
  - SOMNOLENCE [None]
  - STUPOR [None]
  - TACHYCARDIA [None]
